FAERS Safety Report 15310063 (Version 5)
Quarter: 2019Q1

REPORT INFORMATION
  Report Type: Report from Study
  Country: IT (occurrence: IT)
  Receive Date: 20180823
  Receipt Date: 20190306
  Transmission Date: 20190417
  Serious: Yes (Other)
  Sender: FDA-Public Use
  Company Number: IT-ROCHE-2170983

PATIENT
  Age: 60 Year
  Sex: Male

DRUGS (3)
  1. DIBASE [Concomitant]
     Active Substance: CHOLECALCIFEROL
     Route: 065
  2. OCRELIZUMAB. [Suspect]
     Active Substance: OCRELIZUMAB
     Indication: PRIMARY PROGRESSIVE MULTIPLE SCLEROSIS
     Route: 042
     Dates: start: 20180209
  3. MANTADAN [Concomitant]
     Active Substance: AMANTADINE HYDROCHLORIDE
     Route: 065

REACTIONS (1)
  - Hepatitis B reactivation [Recovered/Resolved]
